FAERS Safety Report 16210658 (Version 3)
Quarter: 2019Q3

REPORT INFORMATION
  Report Type: Report from Study
  Country: None (occurrence: BR)
  Receive Date: 20190418
  Receipt Date: 20190716
  Transmission Date: 20191004
  Serious: Yes (Hospitalization, Other)
  Sender: FDA-Public Use
  Company Number: BR-ABBVIE-19K-020-2747605-00

PATIENT
  Age: 80 Year
  Sex: Male
  Weight: 62 kg

DRUGS (4)
  1. HUMIRA [Suspect]
     Active Substance: ADALIMUMAB
     Route: 058
     Dates: start: 20190709
  2. METHOTREXATE. [Concomitant]
     Active Substance: METHOTREXATE
     Indication: RHEUMATIC DISORDER
     Route: 065
  3. FOLIN [Concomitant]
     Active Substance: FOLIC ACID
     Indication: RHEUMATIC DISORDER
     Route: 065
  4. HUMIRA [Suspect]
     Active Substance: ADALIMUMAB
     Indication: RHEUMATOID ARTHRITIS
     Route: 058
     Dates: start: 20160906, end: 201904

REACTIONS (19)
  - Prostatic disorder [Unknown]
  - Procedural site reaction [Unknown]
  - Musculoskeletal stiffness [Unknown]
  - Hernia [Recovering/Resolving]
  - Gastrointestinal infection [Recovered/Resolved]
  - Swelling [Recovering/Resolving]
  - Stress [Unknown]
  - Gastrointestinal necrosis [Recovering/Resolving]
  - Hypertension [Recovered/Resolved]
  - Weight decreased [Unknown]
  - Diarrhoea [Unknown]
  - Pain [Recovering/Resolving]
  - Musculoskeletal chest pain [Recovering/Resolving]
  - Postoperative wound complication [Recovering/Resolving]
  - Post procedural discomfort [Unknown]
  - Mass [Recovering/Resolving]
  - Gastrointestinal disorder [Recovering/Resolving]
  - Anxiety [Unknown]
  - Nocturia [Unknown]

NARRATIVE: CASE EVENT DATE: 2019
